FAERS Safety Report 9888973 (Version 2)
Quarter: 2014Q1

REPORT INFORMATION
  Report Type: Spontaneous
  Country: BE (occurrence: BE)
  Receive Date: 20140211
  Receipt Date: 20140211
  Transmission Date: 20141002
  Serious: Yes (Hospitalization, Disabling, Other)
  Sender: FDA-Public Use
  Company Number: BE-ASTRAZENECA-2013SE86088

PATIENT
  Age: 19799 Day
  Sex: Male
  Weight: 85 kg

DRUGS (2)
  1. BRILIQUE [Suspect]
     Indication: ACUTE CORONARY SYNDROME
     Route: 048
     Dates: start: 20130617, end: 20130619
  2. ASAFLOW [Suspect]
     Indication: ACUTE CORONARY SYNDROME
     Route: 048
     Dates: start: 20130615

REACTIONS (2)
  - Visual impairment [Unknown]
  - Haemorrhage intracranial [Recovered/Resolved with Sequelae]
